FAERS Safety Report 6524675-6 (Version None)
Quarter: 2010Q1

REPORT INFORMATION
  Report Type: 
  Country: None (occurrence: None)
  Receive Date: 20100104
  Receipt Date: 20091225
  Transmission Date: 20100710
  Serious: Yes (Other)
  Sender: FDA-Public Use
  Company Number: US-RB-000024-10

PATIENT
  Age: 35 Year
  Sex: Female

DRUGS (1)
  1. MUCINEX DM [Suspect]
     Dosage: TOOK 6 TABLETS AT ONCE
     Route: 048
     Dates: start: 20091225

REACTIONS (3)
  - LETHARGY [None]
  - OVERDOSE [None]
  - SOMNOLENCE [None]
